FAERS Safety Report 4659259-8 (Version None)
Quarter: 2005Q2

REPORT INFORMATION
  Report Type: 
  Country: None (occurrence: None)
  Receive Date: 20050510
  Receipt Date: 20050414
  Transmission Date: 20051028
  Serious: Yes (Other)
  Sender: FDA-Public Use
  Company Number: 2005S1002385

PATIENT
  Age: 73 Year
  Sex: Male

DRUGS (10)
  1. APOMORPHINE HYDROCHLORIDE [Suspect]
     Indication: PARKINSON'S DISEASE
     Dosage: 80 MG; QD; SC
     Route: 058
     Dates: start: 19960101
  2. SINEMET [Suspect]
     Indication: PARKINSON'S DISEASE
     Dosage: 125 MG; QDS; PO
     Route: 048
  3. SINEMET CR [Suspect]
     Indication: PARKINSON'S DISEASE
     Dosage: 250 MG; X2 HS; PO
     Route: 048
  4. MADOPAR (LEVODOPA/BENSERAZIDE HYDROCHLORIDE) [Suspect]
     Indication: PARKINSON'S DISEASE
     Dosage: 125 MG; QD; PO
     Route: 048
  5. PERGOLIDE MESYLATE [Concomitant]
  6. DOTHIEPIN HYDROCHLORIDE [Concomitant]
  7. OXYBUTYNIN [Concomitant]
  8. SELEGILINE HCL [Concomitant]
  9. TOLCAPONE [Concomitant]
  10. PRAMIPEXOLE [Concomitant]

REACTIONS (3)
  - ANAEMIA [None]
  - HAEMOLYSIS [None]
  - LUNG DISORDER [None]
